FAERS Safety Report 5801228-6 (Version None)
Quarter: 2008Q3

REPORT INFORMATION
  Report Type: 
  Country: None (occurrence: None)
  Receive Date: 20080707
  Receipt Date: 20080703
  Transmission Date: 20090109
  Serious: Yes (Other)
  Sender: FDA-Public Use
  Company Number: DE-SP-2008-02180

PATIENT
  Sex: Male

DRUGS (2)
  1. IMMUCYST [Suspect]
     Indication: BLADDER CANCER
     Dosage: NOT REPORTED.
     Route: 043
     Dates: start: 20080401
  2. IMMUCYST [Suspect]
     Dosage: NOT REPORTED.
     Route: 043
     Dates: start: 20080401

REACTIONS (3)
  - EPIDIDYMITIS [None]
  - LEUKOCYTURIA [None]
  - PROSTATITIS [None]
